FAERS Safety Report 15766808 (Version 1)
Quarter: 2018Q4

REPORT INFORMATION
  Report Type: Spontaneous
  Country: US (occurrence: US)
  Receive Date: 20181227
  Receipt Date: 20181227
  Transmission Date: 20190205
  Serious: Yes (Other)
  Sender: FDA-Public Use
  Company Number: US-MYLANLABS-2018M1094722

PATIENT
  Sex: Female
  Weight: 84 kg

DRUGS (1)
  1. VALSARTAN TABLETS, USP [Suspect]
     Active Substance: VALSARTAN
     Indication: HYPERTENSION
     Dosage: UNK
     Route: 048

REACTIONS (3)
  - Panic attack [Not Recovered/Not Resolved]
  - Colon cancer [Not Recovered/Not Resolved]
  - Anxiety [Not Recovered/Not Resolved]
